FAERS Safety Report 12697824 (Version 1)
Quarter: 2016Q3

REPORT INFORMATION
  Report Type: Spontaneous
  Country: US (occurrence: None)
  Receive Date: 20160829
  Receipt Date: 20160829
  Transmission Date: 20161109
  Serious: Yes (Hospitalization)
  Sender: FDA-Public Use
  Company Number: None

PATIENT
  Age: 82 Year
  Sex: Female
  Weight: 60.3 kg

DRUGS (17)
  1. FLUOXETINE (PROZAC) [Concomitant]
  2. PRILOSEC [Concomitant]
     Active Substance: OMEPRAZOLE MAGNESIUM
  3. LIPITOR [Concomitant]
     Active Substance: ATORVASTATIN CALCIUM
  4. CALCIUM-VITAMIN D (OSCAL-500) [Concomitant]
  5. LASIX [Concomitant]
     Active Substance: FUROSEMIDE
  6. ATENOLOL (TENORMIN) [Concomitant]
  7. TRAVATAN Z [Concomitant]
     Active Substance: TRAVOPROST
  8. OXYCODONE-ACETAMINOPHEN (PERCOCET) [Concomitant]
  9. POLYETHYLENE GLYCOL (GLYCOLAX) [Concomitant]
  10. OXYMORPHONE (OPANA ER) [Concomitant]
  11. THERAPEUTIC MULTIVITAMIN-MINERALS (THERAGRAN-M) [Concomitant]
  12. COUMADIN [Concomitant]
     Active Substance: WARFARIN SODIUM
  13. ASPIRIN. [Concomitant]
     Active Substance: ASPIRIN
  14. NEURONTIN [Concomitant]
     Active Substance: GABAPENTIN
  15. WARFARIN, 2.5MG [Suspect]
     Active Substance: WARFARIN
     Indication: ATRIAL FIBRILLATION
     Route: 048
  16. LISINOPRIL (PRINIVIL; ZESTRIL) [Concomitant]
     Active Substance: LISINOPRIL
  17. AMIODARONE (CORDARONE) [Concomitant]

REACTIONS (9)
  - International normalised ratio increased [None]
  - Fall [None]
  - Haemorrhage [None]
  - Dizziness postural [None]
  - Head injury [None]
  - Hypotension [None]
  - Laceration [None]
  - Subarachnoid haemorrhage [None]
  - Loss of consciousness [None]

NARRATIVE: CASE EVENT DATE: 20160811
